FAERS Safety Report 5173281-7 (Version None)
Quarter: 2006Q4

REPORT INFORMATION
  Report Type: 
  Country: None (occurrence: None)
  Receive Date: 20061206
  Receipt Date: 20061205
  Transmission Date: 20070319
  Serious: Yes (Hospitalization)
  Sender: FDA-Public Use
  Company Number: 2006SP004093

PATIENT
  Age: 73 Year
  Sex: Male
  Weight: 68.0396 kg

DRUGS (3)
  1. LUNESTA [Suspect]
     Dosage: ORAL
     Route: 048
     Dates: start: 20060905
  2. CYMBALTA [Concomitant]
  3. REMERON [Concomitant]

REACTIONS (3)
  - DRUG ABUSER [None]
  - LETHARGY [None]
  - POISONING [None]
